FAERS Safety Report 18442191 (Version 1)
Quarter: 2020Q4

REPORT INFORMATION
  Report Type: Spontaneous
  Country: US (occurrence: US)
  Receive Date: 20201029
  Receipt Date: 20201029
  Transmission Date: 20210114
  Serious: Yes (Hospitalization, Other)
  Sender: FDA-Public Use
  Company Number: US-UNITED THERAPEUTICS-UNT-2020-016132

PATIENT

DRUGS (1)
  1. UNITUXIN [Suspect]
     Active Substance: DINUTUXIMAB
     Indication: CHEMOTHERAPY
     Dosage: UNK
     Route: 041

REACTIONS (3)
  - Staphylococcal infection [Unknown]
  - Bacteraemia [Unknown]
  - Pyrexia [Unknown]
